FAERS Safety Report 6191708-9 (Version None)
Quarter: 2009Q2

REPORT INFORMATION
  Report Type: 
  Country: None (occurrence: None)
  Receive Date: 20090513
  Receipt Date: 20090429
  Transmission Date: 20091009
  Serious: Yes (Hospitalization)
  Sender: FDA-Public Use
  Company Number: TPA2009A00765

PATIENT
  Age: 81 Year
  Sex: Male

DRUGS (15)
  1. ULORIC [Suspect]
     Indication: GOUT
     Dosage: 40 MG, 1 IN 1 D, PER ORAL
     Route: 048
     Dates: start: 20090401, end: 20090401
  2. ASPIRIN [Concomitant]
  3. ACETAMINOPHEN [Concomitant]
  4. METOLAZONE [Concomitant]
  5. FUROSEMIDE [Concomitant]
  6. TOPROL-XL [Concomitant]
  7. HYDROCODONE (HYDROCODONE) [Concomitant]
  8. PREDNISONE TAB [Concomitant]
  9. OMEPRAZOLE [Concomitant]
  10. SIMVASTATIN [Concomitant]
  11. COLCHICINE (COLCHICINE) [Concomitant]
  12. COZAAR [Concomitant]
  13. VITAMIN D [Concomitant]
  14. COUMADIN [Concomitant]
  15. FLECTOR PATCH (ALL OTHER THERAPEUTIC PRODUCTS) [Concomitant]

REACTIONS (2)
  - ASTHENIA [None]
  - RHABDOMYOLYSIS [None]
